FAERS Safety Report 17228248 (Version 1)
Quarter: 2020Q1

REPORT INFORMATION
  Report Type: Spontaneous
  Country: CN (occurrence: CN)
  Receive Date: 20200103
  Receipt Date: 20200103
  Transmission Date: 20200409
  Serious: Yes (Life-Threatening, Other)
  Sender: FDA-Public Use
  Company Number: CN-ACCORD-165089

PATIENT
  Age: 6 Decade
  Sex: Female

DRUGS (2)
  1. IRINOTECAN [Suspect]
     Active Substance: IRINOTECAN
     Indication: GALLBLADDER CANCER
     Dates: start: 201712, end: 201808
  2. OXALIPLATIN. [Suspect]
     Active Substance: OXALIPLATIN
     Indication: GALLBLADDER CANCER
     Dates: start: 201712, end: 201808

REACTIONS (2)
  - Treatment failure [Unknown]
  - Diarrhoea [Unknown]
